FAERS Safety Report 10410085 (Version 1)
Quarter: 2014Q3

REPORT INFORMATION
  Report Type: Spontaneous
  Country: US (occurrence: None)
  Receive Date: 20140825
  Receipt Date: 20140825
  Transmission Date: 20150326
  Serious: Yes (Other)
  Sender: FDA-Public Use
  Company Number: None

PATIENT
  Age: 43 Year
  Sex: Female
  Weight: 2.45 kg

DRUGS (1)
  1. CLONAZEPAM 1 MG [Suspect]
     Active Substance: CLONAZEPAM
     Indication: PANIC ATTACK
     Dosage: 1, ONCE DAILY, TAKEN BY MOUTH
     Route: 048
     Dates: end: 20140821

REACTIONS (5)
  - Tremor [None]
  - Stress [None]
  - Panic attack [None]
  - Drug dependence [None]
  - Drug ineffective [None]
